FAERS Safety Report 7807378-7 (Version None)
Quarter: 2011Q4

REPORT INFORMATION
  Report Type: 
  Country: None (occurrence: None)
  Receive Date: 20111011
  Receipt Date: 20110926
  Transmission Date: 20120403
  Serious: Yes (Other)
  Sender: FDA-Public Use
  Company Number: GB-ARROW GEN-2011-15442

PATIENT
  Age: 81 Year
  Sex: Female
  Weight: 55.3 kg

DRUGS (9)
  1. RAMIPRIL [Concomitant]
     Indication: ESSENTIAL HYPERTENSION
     Dosage: 1 / 1 DAY
     Route: 048
  2. SIMVASTATIN [Concomitant]
     Indication: HYPERLIPIDAEMIA
     Dosage: 40 MG, DAILY
     Route: 048
  3. MIRTAZAPINE [Suspect]
     Indication: MAJOR DEPRESSION
     Dosage: UNK
     Route: 048
     Dates: start: 20100920
  4. OLANZAPINE [Suspect]
     Indication: MAJOR DEPRESSION
     Dosage: UNK
     Route: 048
     Dates: start: 20110413, end: 20110731
  5. ZOLPIDEM [Concomitant]
     Indication: INSOMNIA
     Dosage: 10 MG, DAILY
     Route: 048
     Dates: start: 20101014
  6. VALDOXAN [Suspect]
     Indication: MAJOR DEPRESSION
     Dosage: 25 MG, DAILY
     Route: 048
     Dates: start: 20110730, end: 20110730
  7. ASPIRIN [Concomitant]
     Indication: MYOCARDIAL INFARCTION
     Dosage: 75 MG, DAILY
     Route: 048
  8. LORAZEPAM [Concomitant]
     Indication: MAJOR DEPRESSION
     Dosage: 4 MG, DAILY
     Dates: start: 20101014
  9. LEVOTHYROXINE SODIUM [Concomitant]
     Indication: HYPOTHYROIDISM
     Dosage: 75 MG, DAILY
     Route: 048

REACTIONS (3)
  - HYPOTENSION [None]
  - DRUG INTERACTION [None]
  - SYNCOPE [None]
